FAERS Safety Report 7891825-9 (Version None)
Quarter: 2011Q4

REPORT INFORMATION
  Report Type: 
  Country: None (occurrence: None)
  Receive Date: 20111103
  Receipt Date: 20110810
  Transmission Date: 20120403
  Serious: Yes (Other)
  Sender: FDA-Public Use
  Company Number: US-AMGEN-USASP2011040674

PATIENT
  Sex: Female

DRUGS (1)
  1. ENBREL [Suspect]
     Indication: RHEUMATOID ARTHRITIS
     Dosage: 50 MG, QWK
     Dates: start: 20040101

REACTIONS (5)
  - ONYCHOMYCOSIS [None]
  - HEPATIC ENZYME INCREASED [None]
  - BACK PAIN [None]
  - RHEUMATOID NODULE [None]
  - ARTHRALGIA [None]
